FAERS Safety Report 19141221 (Version 1)
Quarter: 2021Q2

REPORT INFORMATION
  Report Type: Spontaneous
  Country: US (occurrence: US)
  Receive Date: 20210415
  Receipt Date: 20210415
  Transmission Date: 20210717
  Serious: No
  Sender: FDA-Public Use
  Company Number: US-SA-2021SA120993

PATIENT
  Age: 64 Year
  Sex: Female

DRUGS (1)
  1. DUPIXENT [Suspect]
     Active Substance: DUPILUMAB
     Dosage: 300 MG, QOW
     Route: 058

REACTIONS (6)
  - Device use error [Unknown]
  - Eczema [Unknown]
  - Injection site pain [Unknown]
  - Needle issue [Unknown]
  - Injection site mass [Unknown]
  - Dry skin [Unknown]

NARRATIVE: CASE EVENT DATE: 2021
